FAERS Safety Report 11300894 (Version 1)
Quarter: 2015Q3

REPORT INFORMATION
  Report Type: Spontaneous
  Country: US (occurrence: US)
  Receive Date: 20150722
  Receipt Date: 20150722
  Transmission Date: 20151125
  Serious: No
  Sender: FDA-Public Use
  Company Number: US-ELI_LILLY_AND_COMPANY-US201306000111

PATIENT
  Sex: Male

DRUGS (1)
  1. HUMATROPE [Suspect]
     Active Substance: SOMATROPIN
     Indication: BLOOD GROWTH HORMONE
     Dosage: 2.4 (UNKNOWN UNIT)
     Route: 058
     Dates: start: 2013

REACTIONS (7)
  - Mood altered [Unknown]
  - Decreased appetite [Unknown]
  - General physical condition abnormal [Unknown]
  - Pain [Unknown]
  - Drug dose omission [Unknown]
  - Influenza [Unknown]
  - Headache [Unknown]
